FAERS Safety Report 4317498-X (Version None)
Quarter: 2004Q1

REPORT INFORMATION
  Report Type: 
  Country: None (occurrence: None)
  Receive Date: 20040312
  Receipt Date: 20040309
  Transmission Date: 20041129
  Serious: Yes (Hospitalization)
  Sender: FDA-Public Use
  Company Number: STA-AE-04-MTX-097

PATIENT
  Age: 32 Year
  Sex: Female

DRUGS (5)
  1. METHOTREXATE [Suspect]
     Indication: PSORIASIS
     Dosage: 15 MG 1 X PER 1 WK, ORAL
     Route: 048
     Dates: end: 20020101
  2. PARIET (RABEPRAZOLE) [Suspect]
  3. ETODOLAC [Concomitant]
  4. LOXONIN [Concomitant]
  5. VOLTAREN [Concomitant]

REACTIONS (2)
  - AGRANULOCYTOSIS [None]
  - PLATELET COUNT DECREASED [None]
